FAERS Safety Report 23962263 (Version 1)
Quarter: 2024Q2

REPORT INFORMATION
  Report Type: Spontaneous
  Country: US (occurrence: US)
  Receive Date: 20240611
  Receipt Date: 20240611
  Transmission Date: 20240716
  Serious: Yes (Life-Threatening, Hospitalization, Other)
  Sender: FDA-Public Use
  Company Number: US-SUN PHARMACEUTICAL INDUSTRIES LTD-2024R1-450340

PATIENT
  Age: 65 Year
  Sex: Female

DRUGS (1)
  1. METHOTREXATE [Suspect]
     Active Substance: METHOTREXATE
     Indication: Inflammation
     Dosage: 4 PILLS PER DAY
     Route: 065

REACTIONS (6)
  - Toxicity to various agents [Unknown]
  - Overdose [Unknown]
  - Acute kidney injury [Unknown]
  - Encephalopathy [Unknown]
  - Magnetic resonance imaging head abnormal [Unknown]
  - Hypoxia [Unknown]
